FAERS Safety Report 10044738 (Version 1)
Quarter: 2014Q1

REPORT INFORMATION
  Report Type: Spontaneous
  Country: US (occurrence: None)
  Receive Date: 20140306
  Receipt Date: 20140306
  Transmission Date: 20141002
  Serious: Yes (Other)
  Sender: FDA-Public Use
  Company Number: 163-21880-13053482

PATIENT
  Age: 78 Year
  Sex: Male
  Weight: 76.66 kg

DRUGS (3)
  1. REVLIMID [Suspect]
     Indication: PLASMA CELL MYELOMA
     Route: 048
     Dates: start: 200904, end: 200909
  2. DEXAMETHASONE (DEXAMETHASONE) [Concomitant]
  3. BORTEZOMIB (BORTEZOMIB) [Concomitant]

REACTIONS (1)
  - Pancytopenia [None]
